FAERS Safety Report 5692759-0 (Version None)
Quarter: 2008Q2

REPORT INFORMATION
  Report Type: 
  Country: None (occurrence: None)
  Receive Date: 20080401
  Receipt Date: 20080303
  Transmission Date: 20081010
  Serious: Yes (Other)
  Sender: FDA-Public Use
  Company Number: 220001E08USA

PATIENT

DRUGS (1)
  1. SAIZEN [Suspect]
     Dates: start: 20080226

REACTIONS (1)
  - BASAL CELL CARCINOMA [None]
